FAERS Safety Report 4879590-0 (Version None)
Quarter: 2006Q1

REPORT INFORMATION
  Report Type: 
  Country: None (occurrence: None)
  Receive Date: 20060113
  Receipt Date: 20050106
  Transmission Date: 20060701
  Serious: No
  Sender: FDA-Public Use
  Company Number: US-BRISTOL-MYERS SQUIBB COMPANY-12815429

PATIENT
  Sex: Female

DRUGS (1)
  1. PLATINOL [Suspect]
     Indication: BLADDER CANCER
     Route: 042

REACTIONS (1)
  - VISION BLURRED [None]
